FAERS Safety Report 6837664-9 (Version None)
Quarter: 2010Q3

REPORT INFORMATION
  Report Type: 
  Country: None (occurrence: None)
  Receive Date: 20100713
  Receipt Date: 20070608
  Transmission Date: 20110219
  Serious: No
  Sender: FDA-Public Use
  Company Number: US-PFIZER INC-2007040811

PATIENT
  Age: 58 Year
  Sex: Female
  Weight: 93 kg

DRUGS (5)
  1. CHANTIX [Suspect]
     Indication: SMOKING CESSATION THERAPY
     Dates: start: 20070301
  2. CONCERTA [Suspect]
     Indication: ATTENTION DEFICIT/HYPERACTIVITY DISORDER
     Dates: start: 20070401
  3. DRUG, UNSPECIFIED [Suspect]
     Indication: ATTENTION DEFICIT/HYPERACTIVITY DISORDER
     Dates: start: 20070323
  4. PROZAC [Concomitant]
  5. DETROL [Concomitant]

REACTIONS (6)
  - AGITATION [None]
  - DEPRESSION [None]
  - IRRITABILITY [None]
  - PARAESTHESIA [None]
  - SLEEP DISORDER [None]
  - THINKING ABNORMAL [None]
